FAERS Safety Report 22055968 (Version 1)
Quarter: 2023Q1

REPORT INFORMATION
  Report Type: Spontaneous
  Country: FR (occurrence: FR)
  Receive Date: 20230302
  Receipt Date: 20230302
  Transmission Date: 20230418
  Serious: Yes (Other)
  Sender: FDA-Public Use
  Company Number: None

PATIENT
  Age: 85 Year
  Sex: Male
  Weight: 68 kg

DRUGS (8)
  1. CYTARABINE [Suspect]
     Active Substance: CYTARABINE
     Indication: Lymphoma
     Dosage: 1350 MG, SINGLE
     Route: 042
     Dates: start: 20180418, end: 20180418
  2. BENDAMUSTINE [Suspect]
     Active Substance: BENDAMUSTINE
     Indication: Lymphoma
     Dosage: 162 MG, 1X/DAY
     Route: 042
     Dates: start: 20180417, end: 20180418
  3. LORMETAZEPAM [Concomitant]
     Active Substance: LORMETAZEPAM
  4. ELIQUIS [Concomitant]
     Active Substance: APIXABAN
  5. RITUXIMAB [Concomitant]
     Active Substance: RITUXIMAB
  6. VALACYCLOVIR HYDROCHLORIDE [Concomitant]
     Active Substance: VALACYCLOVIR HYDROCHLORIDE
  7. AMLODIPINE [Concomitant]
     Active Substance: AMLODIPINE BESYLATE
  8. CYAMEMAZINE [Concomitant]
     Active Substance: CYAMEMAZINE

REACTIONS (3)
  - Jaundice [Recovered/Resolved]
  - Cholestasis [Recovered/Resolved with Sequelae]
  - Hepatic cytolysis [Recovered/Resolved]

NARRATIVE: CASE EVENT DATE: 20180504
